FAERS Safety Report 7557842-3 (Version None)
Quarter: 2011Q2

REPORT INFORMATION
  Report Type: 
  Country: None (occurrence: None)
  Receive Date: 20110613
  Receipt Date: 20110601
  Transmission Date: 20111010
  Serious: Yes (Hospitalization)
  Sender: FDA-Public Use
  Company Number: 2011SP025778

PATIENT
  Age: 58 Year
  Sex: Male

DRUGS (5)
  1. CLONAZEPAM [Suspect]
     Indication: ANXIETY
     Dosage: 4 MG;QD; 0.5 MG;QD
  2. CLONAZEPAM [Suspect]
     Indication: INSOMNIA
     Dosage: 4 MG;QD; 0.5 MG;QD
  3. VENLAFAXINE [Concomitant]
  4. MIRTAZAPINE [Suspect]
     Indication: PRODUCT USED FOR UNKNOWN INDICATION
     Dosage: 15 MG; QD
  5. ZOLMITRIPTAN [Suspect]
     Indication: MIGRAINE
     Dosage: 5 MG

REACTIONS (7)
  - ANXIETY [None]
  - MIGRAINE [None]
  - SOMNOLENCE [None]
  - UNEVALUABLE EVENT [None]
  - INSOMNIA [None]
  - DRUG ABUSE [None]
  - TENSION [None]
